FAERS Safety Report 5218783-X (Version None)
Quarter: 2007Q1

REPORT INFORMATION
  Report Type: 
  Country: None (occurrence: None)
  Receive Date: 20070123
  Receipt Date: 20070109
  Transmission Date: 20070707
  Serious: Yes (Hospitalization)
  Sender: FDA-Public Use
  Company Number: POMP-10928

PATIENT
  Age: 5 Month
  Sex: Male
  Weight: 5.01 kg

DRUGS (4)
  1. MYOZYME [Suspect]
     Indication: GLYCOGEN STORAGE DISEASE TYPE II
     Dosage: 130 MG Q2WKS IV
     Route: 042
     Dates: start: 20061118
  2. ALBUTEROL [Concomitant]
  3. PROPRANOLOL [Concomitant]
  4. ZANTAC [Concomitant]

REACTIONS (8)
  - GLYCOGEN STORAGE DISEASE TYPE II [None]
  - HYPOTONIA [None]
  - MUSCULAR WEAKNESS [None]
  - ORAL INTAKE REDUCED [None]
  - PNEUMONIA [None]
  - RESPIRATORY DISTRESS [None]
  - SLEEP APNOEA SYNDROME [None]
  - STOMATITIS [None]
